FAERS Safety Report 4575846-X (Version None)
Quarter: 2005Q1

REPORT INFORMATION
  Report Type: 
  Country: None (occurrence: None)
  Receive Date: 20050201
  Receipt Date: 20050201
  Transmission Date: 20050727
  Serious: Yes (Death)
  Sender: FDA-Public Use
  Company Number: None

PATIENT
  Age: 74 Year
  Sex: Male
  Weight: 150 kg

DRUGS (6)
  1. AK-FLUOR  100MG/5ML  AKORN, INC. [Suspect]
     Indication: EYELID PTOSIS
     Dosage: 100MG SINGLE DOSE INTRAVENOUS
     Route: 042
  2. AK-FLUOR  100MG/5ML  AKORN, INC. [Suspect]
     Indication: MACULAR DEGENERATION
     Dosage: 100MG SINGLE DOSE INTRAVENOUS
     Route: 042
  3. ALDACTAZIDE [Concomitant]
  4. INSULIN [Concomitant]
  5. LIPITOR [Concomitant]
  6. LOPID [Concomitant]

REACTIONS (3)
  - CARDIO-RESPIRATORY ARREST [None]
  - CIRCULATORY COLLAPSE [None]
  - PRURITUS [None]
